FAERS Safety Report 7841506-2 (Version None)
Quarter: 2011Q4

REPORT INFORMATION
  Report Type: 
  Country: None (occurrence: None)
  Receive Date: 20111025
  Receipt Date: 20111018
  Transmission Date: 20120403
  Serious: Yes (Other)
  Sender: FDA-Public Use
  Company Number: GB-JNJFOC-20111008359

PATIENT
  Age: 12 Year
  Sex: Male

DRUGS (8)
  1. CHLORAMBUCIL [Suspect]
     Indication: HODGKIN'S DISEASE
     Route: 065
  2. VINCRISTINE [Suspect]
     Indication: HODGKIN'S DISEASE
     Route: 065
  3. PREDNISOLONE [Suspect]
     Indication: HODGKIN'S DISEASE
     Route: 065
  4. DACARBAZINE [Suspect]
     Indication: HODGKIN'S DISEASE
     Route: 065
  5. BLEOMYCIN SULFATE [Suspect]
     Indication: HODGKIN'S DISEASE
     Route: 065
  6. VINBLASTINE SULFATE [Suspect]
     Indication: HODGKIN'S DISEASE
     Route: 065
  7. PROCARBAZINE HYDROCHLORIDE [Suspect]
     Indication: HODGKIN'S DISEASE
     Route: 065
  8. DOXORUBICIN HCL [Suspect]
     Indication: HODGKIN'S DISEASE
     Route: 042

REACTIONS (1)
  - INFERTILITY [None]
